FAERS Safety Report 5737754-8 (Version None)
Quarter: 2008Q2

REPORT INFORMATION
  Report Type: 
  Country: None (occurrence: None)
  Receive Date: 20080512
  Receipt Date: 20080512
  Transmission Date: 20081010
  Serious: No
  Sender: FDA-Public Use
  Company Number: None

PATIENT
  Sex: Male

DRUGS (5)
  1. DIGOXIN [Suspect]
     Dosage: ONE DAILY PO
     Route: 048
     Dates: start: 20080404, end: 20080430
  2. COZAAR [Concomitant]
  3. LIPITOR [Concomitant]
  4. FEXOFENADINE [Concomitant]
  5. TOPROL-XL [Concomitant]

REACTIONS (6)
  - DIZZINESS [None]
  - HYPOTENSION [None]
  - LOSS OF CONSCIOUSNESS [None]
  - NAUSEA [None]
  - PHARMACEUTICAL PRODUCT COMPLAINT [None]
  - VOMITING [None]
